FAERS Safety Report 4747994-2 (Version None)
Quarter: 2005Q3

REPORT INFORMATION
  Report Type: 
  Country: None (occurrence: None)
  Receive Date: 20050818
  Receipt Date: 20050628
  Transmission Date: 20060218
  Serious: Yes (Hospitalization, Other)
  Sender: FDA-Public Use
  Company Number: US-BRISTOL-MYERS SQUIBB COMPANY-13019088

PATIENT
  Age: 66 Year
  Sex: Female
  Weight: 61 kg

DRUGS (11)
  1. CETUXIMAB [Suspect]
     Indication: NON-SMALL CELL LUNG CANCER
     Dosage: CYCLE 1 DAY 1.
     Route: 042
     Dates: start: 20050617, end: 20050617
  2. CARBOPLATIN [Suspect]
     Indication: NON-SMALL CELL LUNG CANCER
     Dosage: DOSE AUC 6. CYCLE 1 DAY 1.
     Route: 042
     Dates: start: 20050617, end: 20050617
  3. DOCETAXEL [Suspect]
     Indication: NON-SMALL CELL LUNG CANCER
     Dosage: CYCLE 1 DAY 1.
     Route: 042
     Dates: start: 20050617, end: 20050617
  4. MS CONTIN [Concomitant]
     Indication: PAIN
     Route: 048
     Dates: start: 20050615, end: 20050629
  5. METOPROLOL [Concomitant]
     Indication: HYPERTENSION
     Route: 048
     Dates: start: 19980101, end: 20050624
  6. AVALIDE [Concomitant]
     Indication: HYPERTENSION
     Dosage: DOSE 300 /125 MG
     Route: 048
     Dates: start: 20010101, end: 20050624
  7. LORTAB [Concomitant]
     Indication: PAIN
     Route: 048
     Dates: start: 20050510
  8. PROTONIX [Concomitant]
     Indication: GASTROOESOPHAGEAL REFLUX DISEASE
     Route: 048
     Dates: start: 20050614
  9. ZOFRAN [Concomitant]
     Indication: NAUSEA
     Dosage: 8 MG ORALLY EVERY EIGHT HOURS AS NEEDED.
     Route: 048
     Dates: start: 20050617
  10. DECADRON [Concomitant]
     Indication: PROPHYLAXIS
     Dates: start: 20050616
  11. TIMOPTIC-XE [Concomitant]
     Indication: GLAUCOMA
     Dates: start: 19970101

REACTIONS (3)
  - ANOREXIA [None]
  - ASTHENIA [None]
  - NEUTROPENIA [None]
